FAERS Safety Report 7605384-9 (Version None)
Quarter: 2011Q3

REPORT INFORMATION
  Report Type: 
  Country: None (occurrence: None)
  Receive Date: 20110712
  Receipt Date: 20110712
  Transmission Date: 20111222
  Serious: Yes (Hospitalization)
  Sender: FDA-Public Use
  Company Number: None

PATIENT
  Age: 66 Year
  Sex: Male
  Weight: 96.8 kg

DRUGS (2)
  1. SIMVASTATIN [Suspect]
     Dosage: 40 MG HS PO
     Route: 048
     Dates: start: 20110501, end: 20110601
  2. GEMFIBROZIL [Suspect]
     Dosage: 600 MG BID PO
     Route: 048
     Dates: start: 20110518, end: 20110601

REACTIONS (4)
  - MYALGIA [None]
  - HEPATIC ENZYME INCREASED [None]
  - BLOOD UREA INCREASED [None]
  - BLOOD CREATININE INCREASED [None]
